FAERS Safety Report 23912445 (Version 1)
Quarter: 2024Q2

REPORT INFORMATION
  Report Type: Spontaneous
  Country: DE (occurrence: DE)
  Receive Date: 20240528
  Receipt Date: 20240528
  Transmission Date: 20240716
  Serious: Yes (Other)
  Sender: FDA-Public Use
  Company Number: DE-BoehringerIngelheim-2024-BI-029922

PATIENT
  Age: 58 Year
  Sex: Female

DRUGS (3)
  1. AFATINIB [Suspect]
     Active Substance: AFATINIB
     Indication: Non-small cell lung cancer
     Dates: start: 201709
  2. AFATINIB [Suspect]
     Active Substance: AFATINIB
     Indication: EGFR gene mutation
     Dates: end: 202012
  3. DENOSUMAB [Concomitant]
     Active Substance: DENOSUMAB
     Indication: Product used for unknown indication

REACTIONS (8)
  - Diarrhoea [Unknown]
  - Metastases to adrenals [Unknown]
  - Malignant neoplasm progression [Unknown]
  - Urosepsis [Unknown]
  - Nephroptosis [Unknown]
  - Stomatitis [Unknown]
  - Skin fissures [Unknown]
  - Urinary retention [Unknown]

NARRATIVE: CASE EVENT DATE: 20171101
